FAERS Safety Report 18961201 (Version 1)
Quarter: 2021Q1

REPORT INFORMATION
  Report Type: Other
  Country: DK (occurrence: DK)
  Receive Date: 20210302
  Receipt Date: 20210302
  Transmission Date: 20210420
  Serious: Yes (Other)
  Sender: FDA-Public Use
  Company Number: DK-ROCHE-2771563

PATIENT

DRUGS (4)
  1. FOLIC ACID. [Concomitant]
     Active Substance: FOLIC ACID
     Dosage: MINIMUM 5 MG EVERY WEEK
  2. METHOTREXATE. [Suspect]
     Active Substance: METHOTREXATE
     Indication: RHEUMATOID ARTHRITIS
     Dosage: ON DAY 1 ESCALATED WITHIN FOUR WEEKS
     Route: 065
  3. TOCILIZUMAB. [Suspect]
     Active Substance: TOCILIZUMAB
     Indication: RHEUMATOID ARTHRITIS
     Route: 058
  4. TOCILIZUMAB. [Suspect]
     Active Substance: TOCILIZUMAB
     Indication: RHEUMATOID ARTHRITIS
     Route: 042

REACTIONS (46)
  - Gastroenteritis viral [Unknown]
  - Localised infection [Unknown]
  - Pharyngitis [Unknown]
  - Sinusitis [Unknown]
  - Tinea versicolour [Unknown]
  - Tonsillitis [Unknown]
  - Urinary tract infection [Unknown]
  - Influenza [Unknown]
  - Oral herpes [Unknown]
  - Sarcoidosis [Unknown]
  - Rehabilitation therapy [Unknown]
  - Papillary thyroid cancer [Unknown]
  - Angina pectoris [Unknown]
  - Gastrointestinal haemorrhage [Unknown]
  - Bronchitis [Unknown]
  - Nail bed infection [Unknown]
  - Respiratory tract infection [Unknown]
  - Upper respiratory tract infection [Unknown]
  - Anal cancer [Unknown]
  - Cerebrovascular accident [Unknown]
  - Pneumonia [Unknown]
  - Tachycardia [Unknown]
  - Latent tuberculosis [Unknown]
  - Varicella [Unknown]
  - Palpitations [Unknown]
  - Osteoporosis [Unknown]
  - Escherichia urinary tract infection [Unknown]
  - Genital herpes [Unknown]
  - Genital infection fungal [Unknown]
  - Nipple infection [Unknown]
  - Paronychia [Unknown]
  - Rhinitis [Unknown]
  - Subcutaneous abscess [Unknown]
  - Tooth infection [Unknown]
  - Cystitis [Unknown]
  - Neutropenia [Unknown]
  - Borrelia infection [Unknown]
  - Fungal skin infection [Unknown]
  - Furuncle [Unknown]
  - Herpes simplex [Unknown]
  - Nasopharyngitis [Unknown]
  - Weight increased [Unknown]
  - Interstitial lung disease [Unknown]
  - Malignant melanoma [Unknown]
  - Eye infection [Unknown]
  - Gastroenteritis [Unknown]
